FAERS Safety Report 5676154-6 (Version None)
Quarter: 2008Q1

REPORT INFORMATION
  Report Type: 
  Country: None (occurrence: None)
  Receive Date: 20080321
  Receipt Date: 20080312
  Transmission Date: 20080703
  Serious: Yes (Other)
  Sender: FDA-Public Use
  Company Number: US-BAYER-200713862BWH

PATIENT
  Age: 45 Year
  Sex: Female

DRUGS (1)
  1. NEXAVAR [Suspect]
     Indication: COLON CANCER
     Dosage: TOTAL DAILY DOSE: 800 MG  UNIT DOSE: 200 MG
     Route: 048
     Dates: start: 20070904, end: 20070920

REACTIONS (4)
  - BLISTER [None]
  - DYSPHAGIA [None]
  - SKIN EXFOLIATION [None]
  - THROAT TIGHTNESS [None]
